FAERS Safety Report 23482957 (Version 1)
Quarter: 2024Q1

REPORT INFORMATION
  Report Type: Spontaneous
  Country: US (occurrence: None)
  Receive Date: 20240204
  Receipt Date: 20240204
  Transmission Date: 20240409
  Serious: Yes (Other)
  Sender: FDA-Public Use
  Company Number: None

PATIENT
  Age: 37 Year
  Sex: Female
  Weight: 80.1 kg

DRUGS (8)
  1. WEGOVY [Suspect]
     Active Substance: SEMAGLUTIDE
     Indication: Obesity
     Dosage: FREQUENCY : WEEKLY;?
     Route: 058
     Dates: start: 20240129, end: 20240129
  2. fluoxetetine hcl [Concomitant]
  3. BUPROPION [Concomitant]
     Active Substance: BUPROPION
  4. PROPRANOLOL [Concomitant]
     Active Substance: PROPRANOLOL HYDROCHLORIDE
  5. IBUPROFEN [Concomitant]
     Active Substance: IBUPROFEN
  6. ACETAMINOPHEN [Concomitant]
     Active Substance: ACETAMINOPHEN
  7. MELATONIN [Concomitant]
     Active Substance: MELATONIN
  8. VITAMIN D [Concomitant]
     Active Substance: VITAMIN D NOS

REACTIONS (7)
  - Vomiting [None]
  - Hypophagia [None]
  - Retching [None]
  - Dysuria [None]
  - Dyspnoea [None]
  - Obstructive airways disorder [None]
  - Drug ineffective [None]

NARRATIVE: CASE EVENT DATE: 20240129
